APPROVED DRUG PRODUCT: LIDEX
Active Ingredient: FLUOCINONIDE
Strength: 0.05% **Federal Register determination that product was not discontinued or withdrawn for safety or effectiveness reasons**
Dosage Form/Route: SOLUTION;TOPICAL
Application: N018849 | Product #001
Applicant: ALVOGEN INC
Approved: Apr 6, 1984 | RLD: Yes | RS: No | Type: DISCN